FAERS Safety Report 21902810 (Version 2)
Quarter: 2023Q1

REPORT INFORMATION
  Report Type: Report from Study
  Country: FR (occurrence: None)
  Receive Date: 20230124
  Receipt Date: 20230322
  Transmission Date: 20230418
  Serious: Yes (Hospitalization)
  Sender: FDA-Public Use
  Company Number: FR-ROCHE-3266065

PATIENT
  Age: 84 Year
  Sex: Female
  Weight: 81 kg

DRUGS (9)
  1. ENTRECTINIB [Suspect]
     Active Substance: ENTRECTINIB
     Indication: Thyroid cancer metastatic
     Dosage: START DATE OF MOST RECENT DOSE OF STUDY DRUG PRIOR TO AE- 12-JAN-2023, DOSE LAST STUDY DRUG ADMIN PR
     Route: 048
     Dates: start: 20221216
  2. FUROSEMIDE [Concomitant]
     Active Substance: FUROSEMIDE
     Indication: Supraventricular extrasystoles
     Route: 048
  3. FUROSEMIDE [Concomitant]
     Active Substance: FUROSEMIDE
     Indication: Supraventricular extrasystoles
  4. FEBUXOSTAT [Concomitant]
     Active Substance: FEBUXOSTAT
     Indication: Renal failure
     Dates: end: 20221216
  5. ESOMEPRAZOLE [Concomitant]
     Active Substance: ESOMEPRAZOLE
     Indication: Gastrooesophageal reflux disease
  6. CHOLECALCIFEROL [Concomitant]
     Active Substance: CHOLECALCIFEROL
     Indication: Internal fixation of fracture
  7. LEVOTHYROXINE [Concomitant]
     Active Substance: LEVOTHYROXINE
     Dates: start: 20211002
  8. ACETAMINOPHEN [Concomitant]
     Active Substance: ACETAMINOPHEN
     Indication: Bone pain
  9. AMOXICILLIN [Concomitant]
     Active Substance: AMOXICILLIN
     Indication: Escherichia urinary tract infection
     Dates: start: 20221201, end: 20221214

REACTIONS (1)
  - Cardiac failure [Recovered/Resolved]

NARRATIVE: CASE EVENT DATE: 20230113
